FAERS Safety Report 8152506-X (Version None)
Quarter: 2012Q1

REPORT INFORMATION
  Report Type: 
  Country: None (occurrence: None)
  Receive Date: 20120221
  Receipt Date: 20120208
  Transmission Date: 20120608
  Serious: Yes (Hospitalization)
  Sender: FDA-Public Use
  Company Number: DE-UCBSA-051227

PATIENT
  Age: 37 Year
  Sex: Male
  Weight: 95 kg

DRUGS (3)
  1. LAMOTRIGINE [Concomitant]
     Indication: PARTIAL SEIZURES
     Dosage: 800 MG ,1DAY
     Route: 048
  2. ZONEGRAN [Concomitant]
     Indication: PARTIAL SEIZURES
     Dosage: 800MG ,1DAY
     Route: 048
  3. VIMPAT [Suspect]
     Indication: PARTIAL SEIZURES
     Dosage: 250 MG,1DAY
     Route: 048
     Dates: start: 20110428, end: 20110521

REACTIONS (3)
  - AGGRESSION [None]
  - PSYCHOTIC DISORDER [None]
  - ANTICONVULSANT DRUG LEVEL INCREASED [None]
